FAERS Safety Report 4351512-0 (Version None)
Quarter: 2004Q2

REPORT INFORMATION
  Report Type: 
  Country: None (occurrence: None)
  Receive Date: 20040428
  Receipt Date: 20040419
  Transmission Date: 20050107
  Serious: Yes (Hospitalization)
  Sender: FDA-Public Use
  Company Number: USA040463975

PATIENT
  Age: 21 Year
  Sex: Female
  Weight: 45 kg

DRUGS (3)
  1. ZYPREXA [Suspect]
     Dosage: 20 MG DAY
     Dates: start: 20040330, end: 20040331
  2. NAFCILLINE [Concomitant]
  3. LEXAPRO [Concomitant]

REACTIONS (3)
  - ABSCESS [None]
  - OSTEOMYELITIS [None]
  - VAGINAL PAIN [None]
